FAERS Safety Report 17248950 (Version 2)
Quarter: 2020Q1

REPORT INFORMATION
  Report Type: Spontaneous
  Country: US (occurrence: US)
  Receive Date: 20200108
  Receipt Date: 20200318
  Transmission Date: 20200409
  Serious: Yes (Hospitalization, Other)
  Sender: FDA-Public Use
  Company Number: US-LUNDBECK-DKLU3010020

PATIENT
  Age: 87 Year
  Sex: Male

DRUGS (1)
  1. NORTHERA [Suspect]
     Active Substance: DROXIDOPA
     Indication: PRODUCT USED FOR UNKNOWN INDICATION
     Route: 065
     Dates: start: 201909

REACTIONS (7)
  - Parkinson^s disease [Unknown]
  - Head injury [Unknown]
  - Hypertension [Unknown]
  - Dysphagia [Not Recovered/Not Resolved]
  - Fall [Unknown]
  - Intentional dose omission [Unknown]
  - Product preparation issue [Unknown]

NARRATIVE: CASE EVENT DATE: 20191225
